FAERS Safety Report 8449050-9 (Version None)
Quarter: 2012Q2

REPORT INFORMATION
  Report Type: 
  Country: None (occurrence: None)
  Receive Date: 20120619
  Receipt Date: 20120606
  Transmission Date: 20120825
  Serious: No
  Sender: FDA-Public Use
  Company Number: US-ASTRAZENECA-2012SE37889

PATIENT
  Age: 54 Year
  Sex: Male
  Weight: 90.7 kg

DRUGS (4)
  1. SEROQUEL XR [Suspect]
     Indication: SLEEP DISORDER
     Route: 048
     Dates: start: 20070101
  2. ZOLOFT [Concomitant]
     Indication: FIBROMYALGIA
  3. SEROQUEL XR [Suspect]
     Indication: TACHYPHRENIA
     Route: 048
     Dates: start: 20070101
  4. TRAZODONE HCL [Concomitant]

REACTIONS (7)
  - BIPOLAR DISORDER [None]
  - BLOOD PRESSURE ABNORMAL [None]
  - OFF LABEL USE [None]
  - SLEEP DISORDER [None]
  - DEPRESSION [None]
  - DRUG DOSE OMISSION [None]
  - FATIGUE [None]
